FAERS Safety Report 20683897 (Version 4)
Quarter: 2022Q3

REPORT INFORMATION
  Report Type: Report from Study
  Country: FR (occurrence: FR)
  Receive Date: 20220407
  Receipt Date: 20220624
  Transmission Date: 20221027
  Serious: Yes (Death, Other)
  Sender: FDA-Public Use
  Company Number: FR-NOVARTISPH-NVSC2022FR076868

PATIENT
  Sex: Male
  Weight: 62 kg

DRUGS (4)
  1. TABRECTA [Suspect]
     Active Substance: CAPMATINIB
     Indication: Non-small cell lung cancer
     Dosage: 400 MG (4 X 200 MG) DAILY
     Route: 048
     Dates: start: 20220202
  2. TABRECTA [Suspect]
     Active Substance: CAPMATINIB
     Indication: Gene mutation
     Dosage: 4X150 MG (DAILY)
     Route: 048
     Dates: start: 20220209
  3. TRAMADOL [Concomitant]
     Active Substance: TRAMADOL
     Indication: Pain
     Dosage: 50 MG
     Route: 048
     Dates: start: 20211201
  4. ESCITALOPRAM [Concomitant]
     Active Substance: ESCITALOPRAM OXALATE
     Indication: Depression
     Dosage: 15 MG
     Route: 048
     Dates: start: 20211223

REACTIONS (11)
  - Non-small cell lung cancer [Fatal]
  - Malignant neoplasm progression [Fatal]
  - Metastases to bone [Unknown]
  - Metastases to lung [Unknown]
  - Cough [Not Recovered/Not Resolved]
  - Haemoptysis [Unknown]
  - Metastases to nervous system [Unknown]
  - Platelet count abnormal [Unknown]
  - Asthenia [Unknown]
  - Nausea [Not Recovered/Not Resolved]
  - Anaemia [Unknown]

NARRATIVE: CASE EVENT DATE: 20220302
